FAERS Safety Report 5787091-0 (Version None)
Quarter: 2008Q2

REPORT INFORMATION
  Report Type: 
  Country: None (occurrence: None)
  Receive Date: 20080623
  Receipt Date: 20080623
  Transmission Date: 20081010
  Serious: Yes (Other)
  Sender: FDA-Public Use
  Company Number: None

PATIENT
  Age: 46 Year
  Sex: Male
  Weight: 108 kg

DRUGS (2)
  1. LISINOPRIL [Suspect]
     Indication: HYPERTENSION
     Dosage: 5MG BID PO
     Route: 048
     Dates: start: 20080512, end: 20080512
  2. ENALAPRIL MALEATE [Suspect]
     Indication: HYPERTENSION
     Dosage: 1.25MG TO 2.5 MG Q6H IV -PRN-
     Route: 042
     Dates: start: 20080512, end: 20080512

REACTIONS (1)
  - ANGIOEDEMA [None]
